FAERS Safety Report 10433896 (Version 2)
Quarter: 2014Q3

REPORT INFORMATION
  Report Type: Spontaneous
  Country: US (occurrence: US)
  Receive Date: 20140905
  Receipt Date: 20140905
  Transmission Date: 20150326
  Serious: Yes (Hospitalization)
  Sender: FDA-Public Use
  Company Number: US-GLAXOSMITHKLINE-A0854013A

PATIENT
  Sex: Male
  Weight: 122.3 kg

DRUGS (2)
  1. AVANDIA [Suspect]
     Active Substance: ROSIGLITAZONE MALEATE
     Indication: HYPERGLYCAEMIA
     Dosage: 8MG SEE DOSAGE TEXT
     Route: 048
     Dates: start: 2004, end: 2008
  2. ROSIGLITAZONE MALEATE. [Suspect]
     Active Substance: ROSIGLITAZONE MALEATE
     Indication: DIABETES MELLITUS
     Dosage: 8MG PER DAY
     Route: 048
     Dates: start: 20040127, end: 20080508

REACTIONS (11)
  - Cerebrovascular accident [Unknown]
  - Cardiac failure congestive [Unknown]
  - Carotid artery stenosis [Unknown]
  - Pulmonary embolism [Unknown]
  - Pleural effusion [Unknown]
  - Cerebral atrophy [Unknown]
  - Angina unstable [Unknown]
  - Carotid artery occlusion [Unknown]
  - Transient ischaemic attack [Unknown]
  - Arteriosclerosis coronary artery [Unknown]
  - Myocardial infarction [Not Recovered/Not Resolved]
